FAERS Safety Report 21848279 (Version 1)
Quarter: 2023Q1

REPORT INFORMATION
  Report Type: Spontaneous
  Country: SG (occurrence: None)
  Receive Date: 20230110
  Receipt Date: 20230110
  Transmission Date: 20230418
  Serious: No
  Sender: FDA-Public Use
  Company Number: None

PATIENT
  Sex: Female

DRUGS (5)
  1. DUPIXENT [Suspect]
     Active Substance: DUPILUMAB
     Indication: Eczema
     Dates: start: 20221219
  2. ANTIHISTAMINES NOS [Concomitant]
     Active Substance: ANTIHISTAMINES NOS
  3. ZYRTEC [Concomitant]
     Active Substance: CETIRIZINE HYDROCHLORIDE
  4. Allergy Drops [Concomitant]
  5. Antamin [Concomitant]

REACTIONS (6)
  - Tendonitis [None]
  - Condition aggravated [None]
  - Arthritis [None]
  - Weight increased [None]
  - Dyspepsia [None]
  - Gastritis [None]

NARRATIVE: CASE EVENT DATE: 20230103
